FAERS Safety Report 21696101 (Version 1)
Quarter: 2022Q4

REPORT INFORMATION
  Report Type: Spontaneous
  Country: FR (occurrence: FR)
  Receive Date: 20221207
  Receipt Date: 20221207
  Transmission Date: 20230113
  Serious: Yes (Hospitalization)
  Sender: FDA-Public Use
  Company Number: None

PATIENT
  Age: 51 Year
  Sex: Female
  Weight: 88 kg

DRUGS (3)
  1. HYDROCORTISONE [Suspect]
     Active Substance: HYDROCORTISONE
     Indication: Adrenal insufficiency
     Dosage: 10MG 3 TIMES A DAY
     Route: 048
     Dates: start: 2016
  2. FLUDROCORTISONE ACETATE [Suspect]
     Active Substance: FLUDROCORTISONE ACETATE
     Indication: Adrenal insufficiency
     Dosage: 0.5MG TWICE A DAY
     Route: 048
     Dates: start: 2016, end: 20221113
  3. PENICILLIN V [Suspect]
     Active Substance: PENICILLIN V
     Indication: Adrenal insufficiency
     Dosage: 1MIU, 2 TIMES A DAY
     Route: 048
     Dates: start: 202112

REACTIONS (1)
  - Pancreatitis acute [Recovering/Resolving]

NARRATIVE: CASE EVENT DATE: 20221026
